FAERS Safety Report 8885429 (Version 1)
Quarter: 2012Q4

REPORT INFORMATION
  Report Type: 
  Country: DE (occurrence: DE)
  Receive Date: 20121105
  Receipt Date: 20121105
  Transmission Date: 20130627
  Serious: Yes (Death)
  Sender: FDA-Public Use
  Company Number: DE-JNJFOC-20121016012

PATIENT
  Age: 30 Year
  Sex: Male

DRUGS (9)
  1. RISPERIDONE [Suspect]
     Indication: PSYCHOTIC DISORDER
     Route: 065
  2. PARACETAMOL [Suspect]
     Route: 065
  3. PARACETAMOL [Suspect]
     Indication: DRUG ABUSE
     Route: 065
  4. COCAINE [Suspect]
     Indication: DRUG ABUSE
     Route: 065
  5. LIDOCAINE [Suspect]
     Indication: DRUG ABUSE
     Route: 065
  6. PAPAVERINE HYDROCHLORIDE [Suspect]
     Indication: DRUG ABUSE
     Route: 065
  7. CAFFEINE [Suspect]
     Indication: DRUG ABUSE
     Route: 065
  8. HEROIN [Suspect]
     Indication: DRUG ABUSE
     Route: 065
  9. NOSCAPINE [Suspect]
     Indication: DRUG ABUSE
     Route: 065

REACTIONS (3)
  - Death [Fatal]
  - Drug abuse [None]
  - Overdose [None]
